FAERS Safety Report 11431402 (Version 2)
Quarter: 2015Q3

REPORT INFORMATION
  Report Type: Report from Study
  Country: BR (occurrence: BR)
  Receive Date: 20150828
  Receipt Date: 20150921
  Transmission Date: 20151125
  Serious: Yes (Other)
  Sender: FDA-Public Use
  Company Number: PHHY2015BR103271

PATIENT
  Sex: Female
  Weight: 58 kg

DRUGS (6)
  1. ONBREZ [Suspect]
     Active Substance: INDACATEROL
     Indication: RHEUMATOID ARTHRITIS
  2. ARAVA [Concomitant]
     Active Substance: LEFLUNOMIDE
     Indication: PRODUCT USED FOR UNKNOWN INDICATION
     Dosage: UNK
     Route: 065
  3. ONBREZ [Suspect]
     Active Substance: INDACATEROL
     Indication: PROPHYLAXIS
  4. SEEBRI BREEZHALER [Suspect]
     Active Substance: GLYCOPYRROLATE
     Indication: PROPHYLAXIS
  5. ONBREZ [Suspect]
     Active Substance: INDACATEROL
     Indication: COUGH
     Dosage: 150 UG, QD (1 CAPSULE PER DAY)
     Route: 055
  6. SEEBRI BREEZHALER [Suspect]
     Active Substance: GLYCOPYRROLATE
     Indication: COUGH
     Dosage: 50 UG, QD (1 CAPSULE PER DAY)
     Route: 055

REACTIONS (8)
  - Off label use [Unknown]
  - Spinal pain [Not Recovered/Not Resolved]
  - Groin pain [Not Recovered/Not Resolved]
  - Skin abrasion [Not Recovered/Not Resolved]
  - Pain in extremity [Not Recovered/Not Resolved]
  - Polyarthritis [Recovering/Resolving]
  - Abasia [Recovering/Resolving]
  - Weight increased [Unknown]
